FAERS Safety Report 25279865 (Version 2)
Quarter: 2025Q2

REPORT INFORMATION
  Report Type: Report from Study
  Country: US (occurrence: US)
  Receive Date: 20250507
  Receipt Date: 20250514
  Transmission Date: 20250717
  Serious: Yes (Other)
  Sender: BRISTOL-MYERS SQUIBB COMPANY
  Company Number: US-BRISTOL-MYERS SQUIBB COMPANY-2025-066592

PATIENT
  Age: 74 Year
  Sex: Female
  Weight: 66.68 kg

DRUGS (3)
  1. ELIQUIS [Suspect]
     Active Substance: APIXABAN
     Indication: Deep vein thrombosis
     Route: 048
     Dates: start: 202502
  2. ELIQUIS [Suspect]
     Active Substance: APIXABAN
     Route: 048
  3. OLMESARTAN [Concomitant]
     Active Substance: OLMESARTAN
     Indication: Blood pressure measurement

REACTIONS (18)
  - Nausea [Unknown]
  - Drug intolerance [Unknown]
  - Epistaxis [Unknown]
  - Haematuria [Unknown]
  - Heart rate decreased [Unknown]
  - Treatment noncompliance [Unknown]
  - Abdominal discomfort [Unknown]
  - Diarrhoea [Unknown]
  - Dizziness [Not Recovered/Not Resolved]
  - Vomiting [Unknown]
  - Blindness [Unknown]
  - Eye haemorrhage [Unknown]
  - Haematochezia [Unknown]
  - Headache [Not Recovered/Not Resolved]
  - Coordination abnormal [Not Recovered/Not Resolved]
  - Eye disorder [Unknown]
  - Weight decreased [Unknown]
  - Product dose omission issue [Unknown]
